FAERS Safety Report 9739367 (Version 1)
Quarter: 2013Q4

REPORT INFORMATION
  Report Type: Spontaneous
  Country: US (occurrence: US)
  Receive Date: 20131209
  Receipt Date: 20131209
  Transmission Date: 20140711
  Serious: No
  Sender: FDA-Public Use
  Company Number: US-GLAXOSMITHKLINE-A0996433A

PATIENT
  Age: 44 Year
  Sex: Female
  Weight: 92.7 kg

DRUGS (1)
  1. AVANDAMET [Suspect]
     Indication: DIABETES MELLITUS
     Route: 048
     Dates: start: 20060101, end: 20121231

REACTIONS (7)
  - Angina pectoris [Not Recovered/Not Resolved]
  - Heart rate irregular [Unknown]
  - Cardiac disorder [Unknown]
  - Hypoaesthesia [Unknown]
  - Chest pain [Unknown]
  - Palpitations [Unknown]
  - Dyspnoea [Unknown]
